FAERS Safety Report 8588306-6 (Version None)
Quarter: 2012Q3

REPORT INFORMATION
  Report Type: 
  Country: None (occurrence: None)
  Receive Date: 20120813
  Receipt Date: 20120730
  Transmission Date: 20120928
  Serious: Yes (Other)
  Sender: FDA-Public Use
  Company Number: IT-ELI_LILLY_AND_COMPANY-IT201207009221

PATIENT
  Sex: Male

DRUGS (1)
  1. OLANZAPINE [Suspect]
     Dosage: 1 DF, UNKNOWN
     Route: 048
     Dates: start: 20120701, end: 20120725

REACTIONS (1)
  - PSYCHIATRIC DECOMPENSATION [None]
